FAERS Safety Report 7432336 (Version 16)
Quarter: 2015Q3

REPORT INFORMATION
  Report Type: Report from Study
  Country: CA (occurrence: CA)
  Receive Date: 20100624
  Receipt Date: 20150706
  Transmission Date: 20151125
  Serious: Yes (Death, Hospitalization, Other)
  Sender: FDA-Public Use
  Company Number: PHHY2009CA55052

PATIENT
  Age: 72 Year
  Sex: Female

DRUGS (2)
  1. SANDOSTATIN [Suspect]
     Active Substance: OCTREOTIDE ACETATE
     Indication: DUMPING SYNDROME
     Route: 058
  2. SANDOSTATIN LAR DEPOT [Suspect]
     Active Substance: OCTREOTIDE ACETATE
     Indication: DUMPING SYNDROME
     Dosage: 20 MG, QMO
     Route: 030
     Dates: start: 20091215, end: 20150416

REACTIONS (20)
  - Death [Fatal]
  - Diabetes mellitus [Unknown]
  - Blood glucose increased [Unknown]
  - Haemorrhoids [Recovered/Resolved]
  - Off label use [Unknown]
  - Sciatica [Unknown]
  - Blood glucose decreased [Unknown]
  - Non-Hodgkin^s lymphoma recurrent [Not Recovered/Not Resolved]
  - Sinusitis [Unknown]
  - Anaemia [Unknown]
  - Neoplasm malignant [Unknown]
  - Headache [Unknown]
  - Diarrhoea [Recovered/Resolved]
  - Pruritus [Recovered/Resolved]
  - Bronchitis [Unknown]
  - Pain in extremity [Unknown]
  - Influenza like illness [Unknown]
  - Vomiting [Unknown]
  - Frequent bowel movements [Unknown]
  - Musculoskeletal pain [Unknown]

NARRATIVE: CASE EVENT DATE: 20110502
